FAERS Safety Report 17141870 (Version 1)
Quarter: 2019Q4

REPORT INFORMATION
  Report Type: Spontaneous
  Country: US (occurrence: US)
  Receive Date: 20191211
  Receipt Date: 20191211
  Transmission Date: 20200122
  Serious: No
  Sender: FDA-Public Use
  Company Number: US-ASTRAZENECA-2019SF61552

PATIENT
  Sex: Male
  Weight: 108.9 kg

DRUGS (3)
  1. BYDUREON BCISE [Suspect]
     Active Substance: EXENATIDE
     Indication: TYPE 2 DIABETES MELLITUS
     Route: 058
  2. BYDUREON [Suspect]
     Active Substance: EXENATIDE
     Indication: TYPE 2 DIABETES MELLITUS
     Dosage: UNKNOWN
     Route: 058
  3. INSULIN [Concomitant]
     Active Substance: INSULIN NOS
     Route: 065

REACTIONS (4)
  - Injection site extravasation [Unknown]
  - Needle issue [Unknown]
  - Body height decreased [Unknown]
  - Incorrect dose administered by device [Unknown]
